FAERS Safety Report 16693225 (Version 1)
Quarter: 2019Q3

REPORT INFORMATION
  Report Type: Spontaneous
  Country: US (occurrence: US)
  Receive Date: 20190812
  Receipt Date: 20190812
  Transmission Date: 20191004
  Serious: Yes (Hospitalization, Other)
  Sender: FDA-Public Use
  Company Number: US-CELGENEUS-USA-20190801050

PATIENT
  Age: 71 Year
  Sex: Female

DRUGS (1)
  1. OTEZLA [Suspect]
     Active Substance: APREMILAST
     Indication: PRODUCT USED FOR UNKNOWN INDICATION
     Dosage: 30 MILLIGRAM
     Route: 048
     Dates: start: 201901

REACTIONS (4)
  - Bladder disorder [Unknown]
  - Benign renal neoplasm [Unknown]
  - Benign neoplasm of bladder [Unknown]
  - Benign neoplasm of ureter [Unknown]

NARRATIVE: CASE EVENT DATE: 20190802
